FAERS Safety Report 25216975 (Version 2)
Quarter: 2025Q2

REPORT INFORMATION
  Report Type: Spontaneous
  Country: JP (occurrence: JP)
  Receive Date: 20250419
  Receipt Date: 20250503
  Transmission Date: 20250716
  Serious: Yes (Hospitalization)
  Sender: UNITED THERAPEUTICS
  Company Number: JP-UNITED THERAPEUTICS-UNT-2025-010790

PATIENT
  Age: 75 Year
  Sex: Male

DRUGS (1)
  1. TYVASO [Suspect]
     Active Substance: TREPROSTINIL
     Indication: Product used for unknown indication
     Dosage: 48 ?G, QID
     Dates: start: 20240528

REACTIONS (1)
  - Compression fracture [Recovering/Resolving]

NARRATIVE: CASE EVENT DATE: 20250301
